FAERS Safety Report 4906206-7 (Version None)
Quarter: 2006Q1

REPORT INFORMATION
  Report Type: 
  Country: None (occurrence: None)
  Receive Date: 20060207
  Receipt Date: 20060119
  Transmission Date: 20060701
  Serious: Yes (Hospitalization)
  Sender: FDA-Public Use
  Company Number: 53999/34

PATIENT
  Age: 26 Year
  Sex: Female

DRUGS (2)
  1. FLUCONAZOLE [Suspect]
     Indication: CANDIDIASIS
     Dosage: 50 MG / DAY
     Dates: start: 20051027, end: 20051125
  2. NORGESTON (LEVONORGESTREL) TABLET [Suspect]
     Indication: ORAL CONTRACEPTION
     Dosage: 30 UG
     Dates: end: 20051224

REACTIONS (2)
  - DRUG INTERACTION [None]
  - HAEMORRHAGE [None]
